FAERS Safety Report 18995555 (Version 2)
Quarter: 2021Q2

REPORT INFORMATION
  Report Type: Spontaneous
  Country: DE (occurrence: DE)
  Receive Date: 20210310
  Receipt Date: 20210416
  Transmission Date: 20210717
  Serious: Yes (Hospitalization, Other)
  Sender: FDA-Public Use
  Company Number: DE-AUROBINDO-AUR-APL-2021-009386

PATIENT
  Age: 55 Year
  Sex: Male

DRUGS (8)
  1. CALCIUM FOLINATE [Suspect]
     Active Substance: LEUCOVORIN CALCIUM
     Dosage: 740 MILLIGRAM, CYCLICAL
     Route: 042
     Dates: start: 20201123, end: 20201123
  2. OXALIPLATIN. [Suspect]
     Active Substance: OXALIPLATIN
     Dosage: 180 MILLIGRAM, CYCLICAL
     Route: 042
     Dates: start: 20201123
  3. 5?FU [Suspect]
     Active Substance: FLUOROURACIL
     Dosage: 5100 MILLIGRAM, CYCLICAL
     Route: 042
     Dates: start: 20201123, end: 20201123
  4. 5?FU [Suspect]
     Active Substance: FLUOROURACIL
     Indication: COLORECTAL CANCER METASTATIC
     Dosage: 5100 MILLIGRAM, CYCLICAL
     Route: 042
     Dates: start: 20200914, end: 20200914
  5. CALCIUM FOLINATE [Suspect]
     Active Substance: LEUCOVORIN CALCIUM
     Indication: COLORECTAL CANCER METASTATIC
     Dosage: 740 MILLIGRAM, CYCLICAL
     Route: 042
     Dates: start: 20200914, end: 20200914
  6. OXALIPLATIN. [Suspect]
     Active Substance: OXALIPLATIN
     Indication: COLORECTAL CANCER METASTATIC
     Dosage: 180 MILLIGRAM, CYCLICAL
     Route: 042
     Dates: start: 20200914, end: 20200914
  7. AFLIBERCEPT [Suspect]
     Active Substance: AFLIBERCEPT
     Indication: COLORECTAL CANCER METASTATIC
     Dosage: 310 MILLIGRAM, CYCLICAL
     Route: 042
     Dates: start: 20200914, end: 20200914
  8. AFLIBERCEPT [Suspect]
     Active Substance: AFLIBERCEPT
     Dosage: 310 MILLIGRAM, CYCLICAL
     Route: 042
     Dates: start: 20201109

REACTIONS (2)
  - Ileus [Recovered/Resolved]
  - Anastomotic leak [Not Recovered/Not Resolved]

NARRATIVE: CASE EVENT DATE: 20210210
